FAERS Safety Report 6433564-7 (Version None)
Quarter: 2009Q4

REPORT INFORMATION
  Report Type: 
  Country: None (occurrence: None)
  Receive Date: 20091106
  Receipt Date: 20091106
  Transmission Date: 20100525
  Serious: Yes (Other)
  Sender: FDA-Public Use
  Company Number: None

PATIENT
  Sex: Female
  Weight: 62.1428 kg

DRUGS (2)
  1. OXYCODONE 30MG MALLINCKRODT [Suspect]
     Indication: MIGRAINE
     Dosage: 30MG Q3-4 PRN PO
     Route: 048
     Dates: start: 20080701
  2. OXYCODONE 30MG MALLINCKRODT [Suspect]
     Indication: NECK PAIN
     Dosage: 30MG Q3-4 PRN PO
     Route: 048
     Dates: start: 20080701

REACTIONS (4)
  - HEADACHE [None]
  - NAUSEA [None]
  - REACTION TO DRUG EXCIPIENTS [None]
  - VOMITING [None]
